FAERS Safety Report 21319297 (Version 6)
Quarter: 2024Q1

REPORT INFORMATION
  Report Type: Spontaneous
  Country: US (occurrence: US)
  Receive Date: 20220911
  Receipt Date: 20240105
  Transmission Date: 20240409
  Serious: No
  Sender: FDA-Public Use
  Company Number: US-SA-SAC20220901000709

PATIENT
  Age: 71 Year
  Sex: Male

DRUGS (3)
  1. DUPIXENT [Suspect]
     Active Substance: DUPILUMAB
     Indication: Immune-mediated adverse reaction
     Dosage: 300 MG, QOW
     Route: 058
     Dates: start: 20220913
  2. DUPIXENT [Suspect]
     Active Substance: DUPILUMAB
     Indication: Dermatitis atopic
  3. KEYTRUDA [Suspect]
     Active Substance: PEMBROLIZUMAB
     Indication: Neoplasm malignant
     Dosage: UNK
     Route: 065

REACTIONS (11)
  - Paraesthesia [Unknown]
  - Condition aggravated [Unknown]
  - Haemoglobin abnormal [Unknown]
  - Abdominal neoplasm [Unknown]
  - Burning sensation [Unknown]
  - Condition aggravated [Unknown]
  - Extra dose administered [Unknown]
  - Pruritus [Unknown]
  - Product preparation error [Unknown]
  - Injection site pain [Unknown]
  - Product use in unapproved indication [Unknown]

NARRATIVE: CASE EVENT DATE: 20220101
